FAERS Safety Report 8911278 (Version 1)
Quarter: 2012Q4

REPORT INFORMATION
  Report Type: 
  Country: US (occurrence: US)
  Receive Date: 20121115
  Receipt Date: 20121115
  Transmission Date: 20130627
  Serious: No
  Sender: FDA-Public Use
  Company Number: US-009507513-1211USA005453

PATIENT
  Sex: Male

DRUGS (2)
  1. SINEMET [Suspect]
     Indication: MOVEMENT DISORDER
     Dosage: 25/100 mg, UNK
     Route: 048
     Dates: start: 201206
  2. CLONAZEPAM [Concomitant]

REACTIONS (2)
  - Headache [Recovered/Resolved]
  - Fatigue [Recovered/Resolved]
